FAERS Safety Report 6768720-1 (Version None)
Quarter: 2010Q2

REPORT INFORMATION
  Report Type: 
  Country: None (occurrence: None)
  Receive Date: 20100614
  Receipt Date: 20100602
  Transmission Date: 20101027
  Serious: Yes (Hospitalization)
  Sender: FDA-Public Use
  Company Number: BE-GENENTECH-302727

PATIENT
  Sex: Male

DRUGS (5)
  1. RITUXIMAB [Suspect]
     Indication: RHEUMATOID ARTHRITIS
     Dosage: 1000 MG, Q6M
     Route: 042
     Dates: start: 20080701, end: 20090101
  2. LEDERTREXATE [Concomitant]
     Indication: RHEUMATOID ARTHRITIS
     Dosage: 15 MG, 1/WEEK
     Route: 048
     Dates: start: 20050101, end: 20091014
  3. MEDROL [Concomitant]
     Indication: CROHN'S DISEASE
     Dosage: 12 MG, UNK
     Route: 048
     Dates: start: 20020101
  4. MEDROL [Concomitant]
     Dosage: 32 MG, QAM
     Route: 048
     Dates: start: 20090901
  5. PIROXICAM [Concomitant]
     Indication: DRUG USE FOR UNKNOWN INDICATION
     Dosage: UNK
     Dates: start: 19900101

REACTIONS (2)
  - DRUG INEFFECTIVE [None]
  - SYNOVITIS [None]
